FAERS Safety Report 8814144 (Version 3)
Quarter: 2013Q2

REPORT INFORMATION
  Report Type: Spontaneous
  Country: CA (occurrence: CA)
  Receive Date: 20120928
  Receipt Date: 20130513
  Transmission Date: 20140414
  Serious: Yes (Other)
  Sender: FDA-Public Use
  Company Number: CA-JNJFOC-20120313274

PATIENT
  Age: 59 Year
  Sex: Male
  Weight: 78 kg

DRUGS (2)
  1. REMICADE [Suspect]
     Indication: CROHN^S DISEASE
     Route: 042
     Dates: start: 200806
  2. REMICADE [Suspect]
     Indication: CROHN^S DISEASE
     Dosage: APPROXIMATELY TOTAL NUMBER OF INFUSIONS: 30
     Route: 042
     Dates: start: 20120322

REACTIONS (5)
  - Tendon pain [Recovered/Resolved]
  - Infusion related reaction [Recovered/Resolved]
  - Oedema [Recovered/Resolved]
  - Feeling hot [Unknown]
  - Gait disturbance [Unknown]
